FAERS Safety Report 21994735 (Version 3)
Quarter: 2023Q1

REPORT INFORMATION
  Report Type: Spontaneous
  Country: US (occurrence: US)
  Receive Date: 20230215
  Receipt Date: 20230303
  Transmission Date: 20230417
  Serious: No
  Sender: FDA-Public Use
  Company Number: US-PFIZER INC-202300064854

PATIENT
  Age: 79 Year
  Sex: Female
  Weight: 82.1 kg

DRUGS (2)
  1. ESTRING [Suspect]
     Active Substance: ESTRADIOL
     Indication: Bladder prolapse
     Dosage: 2 MG, EVERY 3 MONTHS
     Route: 067
     Dates: start: 202208
  2. ESTRADIOL [Concomitant]
     Active Substance: ESTRADIOL
     Indication: Vaginal disorder
     Dosage: UNK, 2X/WEEK(VERY SMALL AMOUNT INSERTED VAGINALLY TWICE WEEKLY)
     Route: 067

REACTIONS (4)
  - Therapeutic response unexpected [Unknown]
  - Off label use [Unknown]
  - Product dose omission issue [Unknown]
  - Product supply issue [Unknown]

NARRATIVE: CASE EVENT DATE: 20230210
